FAERS Safety Report 16941216 (Version 1)
Quarter: 2019Q4

REPORT INFORMATION
  Report Type: Spontaneous
  Country: JP (occurrence: JP)
  Receive Date: 20191021
  Receipt Date: 20191021
  Transmission Date: 20200122
  Serious: Yes (Hospitalization, Other)
  Sender: FDA-Public Use
  Company Number: JP-SA-2019SA286796

PATIENT
  Age: 18 Month
  Sex: Male
  Weight: 11 kg

DRUGS (7)
  1. CHARCOAL [Concomitant]
     Active Substance: ACTIVATED CHARCOAL
     Indication: TOXICITY TO VARIOUS AGENTS
     Route: 048
  2. SALBUTAMOL SULFATE [Suspect]
     Active Substance: ALBUTEROL SULFATE
     Indication: ASTHMA
     Dosage: UNK
     Route: 055
  3. SALBUTAMOL SULFATE [Suspect]
     Active Substance: ALBUTEROL SULFATE
     Indication: ASTHMA
  4. HYDROCORTISONE SALT NOT SPECIFIED [Suspect]
     Active Substance: HYDROCORTISONE
     Indication: ASTHMA
     Dosage: 300 MG VIA 2 H OF DRIP-INFUSION
  5. HYDROCORTISONE SALT NOT SPECIFIED [Suspect]
     Active Substance: HYDROCORTISONE
     Indication: ASTHMA
     Dosage: 150 MG VIA 1 H OF DRIP-INFUSION
  6. AMINOPHYLLINE. [Suspect]
     Active Substance: AMINOPHYLLINE
     Indication: ASTHMA
     Dosage: 125 MG VIA 1 H OF DRIP-INFUSION
  7. AMINOPHYLLINE. [Suspect]
     Active Substance: AMINOPHYLLINE
     Indication: ASTHMA
     Dosage: 250 MG VIA 2 H OF DRIP-INFUSION

REACTIONS (7)
  - Pyrexia [Unknown]
  - Hyperamylasaemia [Recovered/Resolved]
  - Vomiting [Unknown]
  - Nausea [Unknown]
  - Gastrointestinal sounds abnormal [Unknown]
  - Pancreatitis [Unknown]
  - Abdominal distension [Unknown]
